FAERS Safety Report 23802546 (Version 1)
Quarter: 2024Q2

REPORT INFORMATION
  Report Type: Spontaneous
  Country: CN (occurrence: CN)
  Receive Date: 20240501
  Receipt Date: 20240501
  Transmission Date: 20240716
  Serious: Yes (Hospitalization, Other)
  Sender: FDA-Public Use
  Company Number: CN-SUNPHARMA-2024R1-443438AA

PATIENT
  Age: 6 Year
  Sex: Female
  Weight: 16 kg

DRUGS (1)
  1. METOPROLOL [Suspect]
     Active Substance: METOPROLOL
     Indication: Hypertrophic cardiomyopathy
     Dosage: UNK
     Route: 048

REACTIONS (1)
  - Condition aggravated [Unknown]
